FAERS Safety Report 20591304 (Version 2)
Quarter: 2022Q2

REPORT INFORMATION
  Report Type: Spontaneous
  Country: JP (occurrence: JP)
  Receive Date: 20220314
  Receipt Date: 20220421
  Transmission Date: 20220721
  Serious: Yes (Other)
  Sender: FDA-Public Use
  Company Number: JP-SA-2022SA063907

PATIENT
  Age: 8 Month
  Sex: Female
  Weight: 7.6 kg

DRUGS (16)
  1. SABRIL [Suspect]
     Active Substance: VIGABATRIN
     Indication: Infantile spasms
     Dosage: 175 MG, BID
     Route: 048
     Dates: start: 20211225, end: 20211228
  2. SABRIL [Suspect]
     Active Substance: VIGABATRIN
     Dosage: 275 MG, BID
     Route: 048
     Dates: start: 20211229, end: 20211230
  3. SABRIL [Suspect]
     Active Substance: VIGABATRIN
     Dosage: 175 MG, BID
     Route: 048
     Dates: start: 20211231, end: 20220104
  4. SABRIL [Suspect]
     Active Substance: VIGABATRIN
     Dosage: 225 MG, BID
     Route: 048
     Dates: start: 20220105, end: 20220107
  5. SABRIL [Suspect]
     Active Substance: VIGABATRIN
     Dosage: 275 MG, BID
     Route: 048
     Dates: start: 20220108, end: 20220111
  6. SABRIL [Suspect]
     Active Substance: VIGABATRIN
     Dosage: 325 MG, BID
     Route: 048
     Dates: start: 20220112, end: 20220114
  7. SABRIL [Suspect]
     Active Substance: VIGABATRIN
     Dosage: 375 MG, BID
     Route: 048
     Dates: start: 20220115, end: 20220118
  8. SABRIL [Suspect]
     Active Substance: VIGABATRIN
     Dosage: 425 MG, BID
     Route: 048
     Dates: start: 20220119, end: 20220121
  9. SABRIL [Suspect]
     Active Substance: VIGABATRIN
     Dosage: 475 MG, BID
     Route: 048
     Dates: start: 20220122, end: 20220125
  10. SABRIL [Suspect]
     Active Substance: VIGABATRIN
     Dosage: 550 MG, BID
     Route: 048
     Dates: start: 20220126, end: 20220128
  11. SABRIL [Suspect]
     Active Substance: VIGABATRIN
     Dosage: 575 MG, BID
     Route: 048
     Dates: start: 20220129, end: 20220202
  12. SABRIL [Suspect]
     Active Substance: VIGABATRIN
     Dosage: 375 MG, BID
     Route: 048
     Dates: start: 20220203, end: 20220204
  13. SABRIL [Suspect]
     Active Substance: VIGABATRIN
     Dosage: 175 MG, BID
     Route: 048
     Dates: start: 20220205, end: 20220208
  14. CARBOCYSTEINE [Concomitant]
     Active Substance: CARBOCYSTEINE
     Indication: Product used for unknown indication
     Dosage: DAILY DOSAGE: 200 MG
     Route: 048
  15. SULFAMETHOXAZOLE\TRIMETHOPRIM [Concomitant]
     Active Substance: SULFAMETHOXAZOLE\TRIMETHOPRIM
     Indication: Prophylaxis
     Dosage: DAILY DOSAGE: 0.7G
     Route: 048
     Dates: start: 20220218
  16. SULFAMETHOXAZOLE\TRIMETHOPRIM [Concomitant]
     Active Substance: SULFAMETHOXAZOLE\TRIMETHOPRIM
     Indication: Investigation
     Route: 048

REACTIONS (4)
  - Electrocardiogram QT shortened [Not Recovered/Not Resolved]
  - Hypokalaemia [Recovering/Resolving]
  - Hyperglycaemia [Recovered/Resolved]
  - Drug ineffective [Unknown]

NARRATIVE: CASE EVENT DATE: 20220127
